FAERS Safety Report 15766619 (Version 1)
Quarter: 2018Q4

REPORT INFORMATION
  Report Type: Spontaneous
  Country: US (occurrence: US)
  Receive Date: 20181227
  Receipt Date: 20181227
  Transmission Date: 20190205
  Serious: Yes (Hospitalization)
  Sender: FDA-Public Use
  Company Number: US-ELI_LILLY_AND_COMPANY-US201812009487

PATIENT
  Age: 57 Year
  Sex: Male

DRUGS (3)
  1. BASAGLAR [Suspect]
     Active Substance: INSULIN GLARGINE
     Dosage: UNK UNK, UNKNOWN
     Route: 065
  2. BASAGLAR [Suspect]
     Active Substance: INSULIN GLARGINE
     Indication: PRODUCT USED FOR UNKNOWN INDICATION
     Dosage: UNK UNK, UNKNOWN
     Route: 065
  3. NOVOLOG [Concomitant]
     Active Substance: INSULIN ASPART
     Indication: PRODUCT USED FOR UNKNOWN INDICATION
     Dosage: 10 U, TID

REACTIONS (13)
  - Thrombosis [Recovering/Resolving]
  - Spinal deformity [Unknown]
  - Heart rate decreased [Unknown]
  - Stress [Unknown]
  - Spinal cord injury [Unknown]
  - Feeling abnormal [Unknown]
  - Arthritis [Unknown]
  - Nasopharyngitis [Unknown]
  - Chest injury [Unknown]
  - Fluid retention [Unknown]
  - Internal haemorrhage [Unknown]
  - Gait disturbance [Unknown]
  - Road traffic accident [Unknown]

NARRATIVE: CASE EVENT DATE: 201803
